FAERS Safety Report 4621796-X (Version None)
Quarter: 2005Q1

REPORT INFORMATION
  Report Type: 
  Country: None (occurrence: None)
  Receive Date: 20050329
  Receipt Date: 20050223
  Transmission Date: 20050727
  Serious: Yes (Hospitalization)
  Sender: FDA-Public Use
  Company Number: US-ROCHE-396490

PATIENT
  Age: 61 Year
  Sex: Male
  Weight: 96.8 kg

DRUGS (5)
  1. PEG-INTERFERON ALFA 2A (RO 25-8310) [Suspect]
     Dosage: DATE OF LAST DOSE PRIOR TO SAE WAS 17 FEB 2005
     Route: 058
     Dates: start: 20041216, end: 20050217
  2. RIBAVIRIN [Suspect]
     Dosage: DATE OF LAST DOSE PRIOR TO SAE 17 FEB 2005
     Route: 048
     Dates: start: 20041216, end: 20050217
  3. EFFEXOR XR [Concomitant]
     Dates: start: 20041118
  4. PROCRIT [Concomitant]
     Dates: start: 20041111
  5. PROTONIX [Concomitant]
     Dates: start: 20041007

REACTIONS (4)
  - CHOLECYSTITIS [None]
  - CONFUSIONAL STATE [None]
  - MENTAL STATUS CHANGES [None]
  - PANCREATITIS [None]
